FAERS Safety Report 5890313-9 (Version None)
Quarter: 2008Q3

REPORT INFORMATION
  Report Type: 
  Country: None (occurrence: None)
  Receive Date: 20080918
  Receipt Date: 20080910
  Transmission Date: 20090109
  Serious: Yes (Other)
  Sender: FDA-Public Use
  Company Number: 2008AP002354

PATIENT
  Age: 76 Year
  Sex: Male

DRUGS (1)
  1. TRIAMETERENE AND HYDROCHLOROTHIAZIDE [Suspect]
     Dosage: PO
     Route: 048

REACTIONS (4)
  - HYPERSENSITIVITY [None]
  - OEDEMA MOUTH [None]
  - OEDEMA PERIPHERAL [None]
  - RASH [None]
